FAERS Safety Report 8884020 (Version 1)
Quarter: 2012Q4

REPORT INFORMATION
  Report Type: 
  Country: US (occurrence: US)
  Receive Date: 20121102
  Receipt Date: 20121102
  Transmission Date: 20130627
  Serious: No
  Sender: FDA-Public Use
  Company Number: US-ASTRAZENECA-2012SE26887

PATIENT
  Age: 42 Year
  Sex: Male

DRUGS (4)
  1. CRESTOR [Suspect]
     Route: 048
  2. PAROXETINE [Concomitant]
  3. HYDROCODONE/ACETAMINPHEN [Concomitant]
  4. ASPIRIN [Concomitant]

REACTIONS (2)
  - Blood cholesterol abnormal [Unknown]
  - Road traffic accident [Unknown]
